FAERS Safety Report 7753068-9 (Version None)
Quarter: 2011Q3

REPORT INFORMATION
  Report Type: 
  Country: None (occurrence: None)
  Receive Date: 20110915
  Receipt Date: 20110908
  Transmission Date: 20111222
  Serious: Yes (Other)
  Sender: FDA-Public Use
  Company Number: FR-NOVOPROD-333400

PATIENT

DRUGS (7)
  1. LEVOTHYROXINE SODIUM [Concomitant]
     Dosage: 1, QD
     Route: 048
     Dates: start: 19960101
  2. TOCOLION [Concomitant]
     Dosage: 500 MG, QD
     Route: 048
     Dates: start: 20000101
  3. AROMASIN [Concomitant]
  4. URSOLVAN [Concomitant]
     Dosage: 100 MG, QD
     Route: 048
     Dates: start: 20000101
  5. REPAGLINIDE [Suspect]
     Indication: TYPE 2 DIABETES MELLITUS
     Dosage: 3 MG, QD
     Route: 048
     Dates: start: 20110720, end: 20110808
  6. ZOMETA [Concomitant]
  7. AROMASIN [Concomitant]
     Dosage: 25 MG, QD
     Route: 048
     Dates: start: 20101001

REACTIONS (1)
  - CYSTITIS [None]
